FAERS Safety Report 24642811 (Version 1)
Quarter: 2024Q4

REPORT INFORMATION
  Report Type: Spontaneous
  Country: GB (occurrence: None)
  Receive Date: 20241120
  Receipt Date: 20241120
  Transmission Date: 20250115
  Serious: No
  Sender: Public
  Company Number: None

PATIENT
  Age: 72 Year
  Sex: Female

DRUGS (1)
  1. NASAL SALINE [Suspect]
     Active Substance: SODIUM CHLORIDE
     Indication: Rhinitis allergic
     Route: 045

REACTIONS (1)
  - Nausea [None]
